FAERS Safety Report 7541467 (Version 3)
Quarter: 2012Q4

REPORT INFORMATION
  Report Type: 
  Country: US (occurrence: US)
  Receive Date: 20100815
  Receipt Date: 20121121
  Transmission Date: 20130627
  Serious: Yes (Death, Other)
  Sender: FDA-Public Use
  Company Number: US-BAYER-201030077NA

PATIENT
  Age: 62 Year
  Sex: Female
  Weight: 65.76 kg

DRUGS (26)
  1. TRASYLOL [Suspect]
     Indication: MITRAL VALVE REPLACEMENT
     Dosage: 200 ml loading dose followed by 25 ml/hour infusion
     Route: 042
     Dates: start: 20030429, end: 20030429
  2. TRASYLOL [Suspect]
     Indication: DOUBLE VESSEL BYPASS GRAFT
  3. TRASYLOL [Suspect]
     Indication: AORTA SUBSTITUTION
  4. TOPROL [Concomitant]
     Dosage: UNK
     Dates: start: 20030323
  5. ZOCOR [Concomitant]
     Dosage: 50 mg, QD
     Route: 048
     Dates: start: 20030323
  6. LASIX [Concomitant]
     Dosage: UNK
     Dates: start: 20030323
  7. LASIX [Concomitant]
     Dosage: 20 mg, UNK
     Route: 042
     Dates: start: 20030429, end: 20030429
  8. POTASSIUM [Concomitant]
     Dosage: UNK
     Dates: start: 20030323
  9. COUMADIN [Concomitant]
     Dosage: UNK
     Dates: start: 20030323
  10. VANCOMYCIN [Concomitant]
     Dosage: 1 g, QD
     Route: 042
     Dates: start: 20030323, end: 20030504
  11. HEPARIN [Concomitant]
     Dosage: Titrated
     Route: 042
     Dates: start: 20030323
  12. HEPARIN [Concomitant]
     Dosage: 30000 u, UNK
     Route: 042
     Dates: start: 20030429, end: 20030429
  13. HEPARIN [Concomitant]
     Dosage: 10000 u, UNK
     Route: 042
     Dates: start: 20030429, end: 20030429
  14. TYLENOL [PARACETAMOL] [Concomitant]
     Dosage: Every 4 hours as needed
     Route: 048
     Dates: start: 20030323
  15. VICODIN [Concomitant]
     Dosage: As needed every 4 hours
     Route: 048
     Dates: start: 20030323
  16. DESFLURANE [Concomitant]
     Dosage: UNK
     Dates: start: 20030429, end: 20030429
  17. FENTANYL [Concomitant]
     Dosage: UNK
     Dates: start: 20030429, end: 20030429
  18. VERSED [Concomitant]
     Dosage: UNK
     Dates: start: 20030429, end: 20030429
  19. DOBUTREX [Concomitant]
     Dosage: UNK
     Dates: start: 20030429, end: 20030429
  20. EPINEPHRINE [Concomitant]
     Dosage: UNK
     Dates: start: 20030429, end: 20030429
  21. LIDOCAINE [Concomitant]
     Dosage: 100 mg, UNK
     Route: 042
     Dates: start: 20030429, end: 20030429
  22. CEFAZOLIN [Concomitant]
     Dosage: 2 g, UNK
     Dates: start: 20030429, end: 20030429
  23. MANNITOL [Concomitant]
     Dosage: 50 mEq, UNK
     Route: 042
     Dates: start: 20030429, end: 20030429
  24. ACCUPRIL [Concomitant]
  25. VIOXX [Concomitant]
  26. TRICOR [Concomitant]

REACTIONS (14)
  - Renal injury [Unknown]
  - Renal failure [None]
  - Multi-organ failure [Unknown]
  - Anxiety [Unknown]
  - Fear [Unknown]
  - Pain [Unknown]
  - Depression [Unknown]
  - Injury [Unknown]
  - Anxiety [Unknown]
  - Disability [Unknown]
  - Emotional distress [Unknown]
  - Death [Fatal]
  - Anhedonia [Unknown]
  - Off label use [None]
